FAERS Safety Report 5056264-7 (Version None)
Quarter: 2006Q3

REPORT INFORMATION
  Report Type: 
  Country: None (occurrence: None)
  Receive Date: 20060717
  Receipt Date: 20060704
  Transmission Date: 20061208
  Serious: No
  Sender: FDA-Public Use
  Company Number: 2006078880

PATIENT
  Age: 58 Year
  Sex: Female

DRUGS (2)
  1. UNASYN [Suspect]
     Indication: ENDOCARDITIS
     Dosage: 1.5 GRAM (1.5 GRAM, 1 IN 1 D), INTRAVENOUS
     Route: 042
     Dates: start: 20060618
  2. MINOCYCLINE HYDROCHLORIDE [Concomitant]

REACTIONS (1)
  - BLEPHAROSPASM [None]
